FAERS Safety Report 16700997 (Version 3)
Quarter: 2019Q4

REPORT INFORMATION
  Report Type: Spontaneous
  Country: US (occurrence: US)
  Receive Date: 20190814
  Receipt Date: 20191011
  Transmission Date: 20200122
  Serious: Yes (Hospitalization, Other)
  Sender: FDA-Public Use
  Company Number: US-TEVA-2019-US-1092125

PATIENT
  Sex: Female

DRUGS (12)
  1. CALCIUM [Concomitant]
     Active Substance: CALCIUM
     Route: 065
  2. SPIRONOLACTONE. [Concomitant]
     Active Substance: SPIRONOLACTONE
     Route: 065
  3. FUROSEMIDE. [Concomitant]
     Active Substance: FUROSEMIDE
     Route: 065
  4. POTASSIUM CHLORIDE. [Concomitant]
     Active Substance: POTASSIUM CHLORIDE
     Route: 065
  5. SOTALOL HYDROCHLORIDE TABLETS [Suspect]
     Active Substance: SOTALOL HYDROCHLORIDE
     Dosage: 120 MG IN THE MORNING AND 80 MG IN THE EVENING
     Route: 065
  6. SOTALOL HYDROCHLORIDE TABLETS [Suspect]
     Active Substance: SOTALOL HYDROCHLORIDE
     Indication: ATRIAL FIBRILLATION
     Dosage: 160 MILLIGRAM DAILY;
     Route: 065
  7. ACETAMINOPHEN. [Concomitant]
     Active Substance: ACETAMINOPHEN
     Route: 065
  8. FLONASE [Concomitant]
     Active Substance: FLUTICASONE PROPIONATE
     Route: 065
  9. SIMVASTATIN. [Concomitant]
     Active Substance: SIMVASTATIN
     Route: 065
  10. SOTALOL HYDROCHLORIDE TABLETS [Suspect]
     Active Substance: SOTALOL HYDROCHLORIDE
     Dosage: 240 MILLIGRAM DAILY;
     Route: 065
  11. ALENDRONATE [Concomitant]
     Active Substance: ALENDRONATE SODIUM
     Route: 065
  12. WARFARIN [Concomitant]
     Active Substance: WARFARIN
     Route: 065

REACTIONS (2)
  - Atrial fibrillation [Not Recovered/Not Resolved]
  - Bradycardia [Unknown]

NARRATIVE: CASE EVENT DATE: 20190615
